FAERS Safety Report 7296604-1 (Version None)
Quarter: 2011Q1

REPORT INFORMATION
  Report Type: 
  Country: None (occurrence: None)
  Receive Date: 20110216
  Receipt Date: 20110208
  Transmission Date: 20110831
  Serious: Yes (Hospitalization)
  Sender: FDA-Public Use
  Company Number: PHHY2011JP10094

PATIENT
  Age: 90 Year
  Sex: Female

DRUGS (1)
  1. FAMVIR [Suspect]
     Indication: HERPES ZOSTER
     Dosage: 1500 MG, UNK
     Route: 048
     Dates: start: 20110126, end: 20110201

REACTIONS (1)
  - RENAL FAILURE ACUTE [None]
